FAERS Safety Report 8275172-1 (Version None)
Quarter: 2012Q2

REPORT INFORMATION
  Report Type: 
  Country: None (occurrence: None)
  Receive Date: 20120411
  Receipt Date: 20120404
  Transmission Date: 20120825
  Serious: Yes (Other)
  Sender: FDA-Public Use
  Company Number: PHHY2012US026891

PATIENT
  Age: 38 Year
  Sex: Female

DRUGS (3)
  1. VENLAFAXINE [Concomitant]
  2. BUPROPION HCL [Concomitant]
  3. ZOLPIDEM [Suspect]
     Indication: HEADACHE
     Dosage: 5 OR 10 MG , UNK

REACTIONS (2)
  - POISONING [None]
  - AMNESIA [None]
